FAERS Safety Report 6935064-4 (Version None)
Quarter: 2010Q3

REPORT INFORMATION
  Report Type: 
  Country: None (occurrence: None)
  Receive Date: 20100822
  Receipt Date: 20100811
  Transmission Date: 20110219
  Serious: Yes (Death)
  Sender: FDA-Public Use
  Company Number: PHHY2010US53221

PATIENT
  Sex: Male

DRUGS (4)
  1. AREDIA [Suspect]
  2. ZOMETA [Suspect]
  3. SANDOSTATIN [Suspect]
  4. SANDOSTATIN LAR [Suspect]

REACTIONS (1)
  - DEATH [None]
